FAERS Safety Report 5280172-X (Version None)
Quarter: 2007Q1

REPORT INFORMATION
  Report Type: 
  Country: None (occurrence: None)
  Receive Date: 20070326
  Receipt Date: 20070326
  Transmission Date: 20070707
  Serious: No
  Sender: FDA-Public Use
  Company Number: None

PATIENT
  Age: 45 Year
  Sex: Female
  Weight: 66.6788 kg

DRUGS (2)
  1. CLONAZEPAM [Suspect]
     Indication: ANXIETY
     Dosage: 0.5 MG 1-3X AS NEEDED PO
     Route: 048
     Dates: start: 20070228, end: 20070301
  2. CLONAZEPAM [Suspect]
     Indication: SLEEP DISORDER
     Dosage: 0.5 MG 1-3X AS NEEDED PO
     Route: 048
     Dates: start: 20070228, end: 20070301

REACTIONS (11)
  - CHILLS [None]
  - CONFUSIONAL STATE [None]
  - CONVULSION [None]
  - DIZZINESS [None]
  - DRUG HYPERSENSITIVITY [None]
  - FLUSHING [None]
  - HEADACHE [None]
  - PARAESTHESIA [None]
  - PHARMACEUTICAL PRODUCT COMPLAINT [None]
  - POOR QUALITY DRUG ADMINISTERED [None]
  - TREMOR [None]
